FAERS Safety Report 7819890 (Version 2)
Quarter: 2013Q4

REPORT INFORMATION
  Report Type: Spontaneous
  Country: US (occurrence: US)
  Receive Date: 20110221
  Receipt Date: 20131009
  Transmission Date: 20140711
  Serious: Yes (Death, Other)
  Sender: FDA-Public Use
  Company Number: US-RANBAXY-2010US-39387

PATIENT
  Age: 89 Year
  Sex: Female

DRUGS (1)
  1. ACETAMINOPHEN [Suspect]
     Indication: PRODUCT USED FOR UNKNOWN INDICATION
     Dosage: UNK
     Route: 065

REACTIONS (5)
  - Overdose [Fatal]
  - Hepatotoxicity [Unknown]
  - Toxicity to various agents [Fatal]
  - International normalised ratio increased [Unknown]
  - Hypotension [Recovered/Resolved]
